FAERS Safety Report 6551603-X (Version None)
Quarter: 2010Q1

REPORT INFORMATION
  Report Type: 
  Country: None (occurrence: None)
  Receive Date: 20100122
  Receipt Date: 20091014
  Transmission Date: 20100710
  Serious: Yes (Hospitalization)
  Sender: FDA-Public Use
  Company Number: WAES 0910USA01747

PATIENT
  Age: 102 Year
  Sex: Female

DRUGS (1)
  1. INVANZ [Suspect]
     Indication: CULTURE URINE POSITIVE
     Dosage: 500 MG/DAILY
     Dates: start: 20091012

REACTIONS (1)
  - PLATELET COUNT DECREASED [None]
